FAERS Safety Report 6010011-0 (Version None)
Quarter: 2008Q4

REPORT INFORMATION
  Report Type: 
  Country: None (occurrence: None)
  Receive Date: 20081216
  Receipt Date: 20081203
  Transmission Date: 20090506
  Serious: Yes (Life-Threatening, Other)
  Sender: FDA-Public Use
  Company Number: 2008AL011458

PATIENT
  Age: 36 Year
  Sex: Female

DRUGS (3)
  1. DIAZEPAM TAB [Suspect]
     Indication: MUSCLE SPASMS
     Dosage: 5 MG; TID
     Dates: start: 20080905, end: 20080915
  2. DICLOFENAC SODIUM DELAYED-RELEASE TABLETS, 50 MG [Suspect]
     Indication: DRUG USE FOR UNKNOWN INDICATION
     Dosage: 50 MG; TID; PO
     Route: 048
  3. REBOXETINE [Concomitant]

REACTIONS (7)
  - BACK PAIN [None]
  - DISSOCIATION [None]
  - DRUG INTERACTION [None]
  - FEELING ABNORMAL [None]
  - HALLUCINATION, AUDITORY [None]
  - MUSCLE SPASMS [None]
  - SUICIDAL IDEATION [None]
